FAERS Safety Report 23614914 (Version 1)
Quarter: 2024Q1

REPORT INFORMATION
  Report Type: Spontaneous
  Country: US (occurrence: US)
  Receive Date: 20240311
  Receipt Date: 20240311
  Transmission Date: 20240410
  Serious: No
  Sender: FDA-Public Use
  Company Number: US-SA-SAC20240307000623

PATIENT
  Age: 63 Year
  Sex: Male
  Weight: 154 kg

DRUGS (14)
  1. DUPIXENT [Suspect]
     Active Substance: DUPILUMAB
     Indication: Asthma
     Dosage: 300 MG, QOW
     Route: 058
  2. ALLOPURINOL [Concomitant]
     Active Substance: ALLOPURINOL
  3. TRELEGY ELLIPTA [Concomitant]
     Active Substance: FLUTICASONE FUROATE\UMECLIDINIUM BROMIDE\VILANTEROL TRIFENATATE
  4. NEURIVA BRAIN PERFORMANCE PLUS [Concomitant]
  5. VTAMA [Concomitant]
     Active Substance: TAPINAROF
  6. TYLENOL [Concomitant]
     Active Substance: ACETAMINOPHEN
  7. LISINOPRIL [Concomitant]
     Active Substance: LISINOPRIL
  8. DILTIAZEM [Concomitant]
     Active Substance: DILTIAZEM
  9. SERTRALINE HYDROCHLORIDE [Concomitant]
     Active Substance: SERTRALINE HYDROCHLORIDE
  10. POTASSIUM CHLORIDE [Concomitant]
     Active Substance: POTASSIUM CHLORIDE
  11. TRADJENTA [Concomitant]
     Active Substance: LINAGLIPTIN
  12. ATENOLOL [Concomitant]
     Active Substance: ATENOLOL
  13. ELIQUIS [Concomitant]
     Active Substance: APIXABAN
     Dosage: 40MG
  14. DILTIAZEM [Concomitant]
     Active Substance: DILTIAZEM

REACTIONS (1)
  - Memory impairment [Not Recovered/Not Resolved]

NARRATIVE: CASE EVENT DATE: 20230901
